FAERS Safety Report 9710892 (Version 2)
Quarter: 2013Q4

REPORT INFORMATION
  Report Type: Spontaneous
  Country: US (occurrence: US)
  Receive Date: 20131126
  Receipt Date: 20131126
  Transmission Date: 20140711
  Serious: No
  Sender: FDA-Public Use
  Company Number: US201210001104

PATIENT
  Age: 61 Year
  Sex: Female

DRUGS (2)
  1. BYDUREON [Suspect]
     Indication: TYPE 2 DIABETES MELLITUS
     Dosage: DURATION-8 OR 9 MNTHS?PRESCRIPTION NO: 382260
     Route: 058
     Dates: start: 20121002
  2. VICTOZA [Concomitant]
     Indication: TYPE 2 DIABETES MELLITUS
     Dates: end: 20121002

REACTIONS (4)
  - Blood glucose increased [Not Recovered/Not Resolved]
  - Injection site extravasation [Recovered/Resolved]
  - Injection site haemorrhage [Unknown]
  - Injection site pain [Unknown]
